FAERS Safety Report 19978859 (Version 1)
Quarter: 2021Q4

REPORT INFORMATION
  Report Type: Spontaneous
  Country: US (occurrence: US)
  Receive Date: 20211021
  Receipt Date: 20211021
  Transmission Date: 20220303
  Serious: No
  Sender: FDA-Public Use
  Company Number: None

PATIENT
  Sex: Male

DRUGS (20)
  1. AMBRISENTAN [Suspect]
     Active Substance: AMBRISENTAN
     Indication: Pulmonary arterial hypertension
     Route: 048
  2. HYDROXYZINE HYDROCHLORIDE    MONTELUKAST SODIUM [Concomitant]
  3. VOLTAREN    ACETAMINOPHEN [Concomitant]
  4. OMEPRAZOLE    AMOXICILLIN [Concomitant]
  5. MIRALAX    ARTHRITIS PAIN RELIEF [Concomitant]
  6. FISH OIL    CENTRUM SILVER 50+MEN [Concomitant]
  7. OXYCODONE/ACETAMINOPHEN    GABAPENTIN [Concomitant]
  8. HYDROCODONE BITARTRATE/AC    AMITRIPTYLINE HYDROCHLORI [Concomitant]
  9. SAW PALMETTO  ATENOLOL [Concomitant]
  10. ZINC    VALACYCLOVIR HCL [Concomitant]
  11. DOCUSATE SODIUM    HAIR/SKIN/NAILS [Concomitant]
  12. LUTEIN    OMEGA 3 [Concomitant]
  13. ISOSORBIDE DINITRATE    XARELTO [Concomitant]
  14. ELIQUIS    BELSOMRA [Concomitant]
  15. OXCARBAZEPINE    MAGNESIUM ELEMENTAL [Concomitant]
  16. CLONAZEPAM ODT    HYDRALAZINE HCL [Concomitant]
  17. CORTIZONE-10   ASPIRIN [Concomitant]
  18. MAGNESIUM OXIDE    TIZANIDINE HCL [Concomitant]
  19. NEPHROCAPS    VITAMIN B12 [Concomitant]
  20. VITAMIN C    BUMETANIDE [Concomitant]

REACTIONS (8)
  - Fluid retention [None]
  - Abnormal loss of weight [None]
  - Weight increased [None]
  - Fall [None]
  - Cervical vertebral fracture [None]
  - Urinary tract infection [None]
  - Gout [None]
  - Gait inability [None]
